FAERS Safety Report 24335709 (Version 2)
Quarter: 2024Q3

REPORT INFORMATION
  Report Type: Spontaneous
  Country: US (occurrence: US)
  Receive Date: 20240919
  Receipt Date: 20240923
  Transmission Date: 20241017
  Serious: No
  Sender: ROCHE
  Company Number: US-ROCHE-10000083810

PATIENT
  Age: 57 Year
  Sex: Female
  Weight: 71.66 kg

DRUGS (1)
  1. ALECENSA [Suspect]
     Active Substance: ALECTINIB HYDROCHLORIDE
     Indication: Non-small cell lung cancer
     Dosage: CAPSULE COME AS 600 MG CAPSULES - PATIENT TAKES 2 CAPSULES EVERY DAY. LAST DOSE 16-SEP-2024
     Route: 048
     Dates: start: 201802

REACTIONS (4)
  - Insomnia [Not Recovered/Not Resolved]
  - Weight increased [Recovered/Resolved]
  - Bradycardia [Not Recovered/Not Resolved]
  - Heart rate decreased [Not Recovered/Not Resolved]

NARRATIVE: CASE EVENT DATE: 20240901
